FAERS Safety Report 9931475 (Version 1)
Quarter: 2014Q1

REPORT INFORMATION
  Report Type: Spontaneous
  Country: US (occurrence: US)
  Receive Date: 20140228
  Receipt Date: 20140228
  Transmission Date: 20141002
  Serious: Yes (Other)
  Sender: FDA-Public Use
  Company Number: US-SUN PHARMACEUTICAL INDUSTRIES LTD-2014SUN00399

PATIENT
  Age: 77 Year
  Sex: Male

DRUGS (5)
  1. LEVETIRACETAM INJECTION 500MG/5ML [Suspect]
     Indication: POST-TRAUMATIC EPILEPSY
     Dosage: 500 MG, BID
     Route: 042
  2. FUROSEMIDE [Concomitant]
     Dosage: 40 MG, QD
     Route: 048
  3. FUROSEMIDE [Concomitant]
     Dosage: 20 MG PER NASOGASTRIC
  4. POTASSIUM CHLORIDE [Concomitant]
     Dosage: 20 MEQ, BID
     Route: 048
  5. ASPIRIN [Concomitant]
     Dosage: 81 MG, QD
     Route: 048

REACTIONS (1)
  - Delirium [Recovered/Resolved]
